FAERS Safety Report 17011058 (Version 3)
Quarter: 2020Q1

REPORT INFORMATION
  Report Type: Report from Study
  Country: US (occurrence: US)
  Receive Date: 20191108
  Receipt Date: 20200302
  Transmission Date: 20200409
  Serious: Yes (Other)
  Sender: FDA-Public Use
  Company Number: US-ROCHE-2456633

PATIENT
  Age: 53 Year
  Sex: Female

DRUGS (2)
  1. OCREVUS [Suspect]
     Active Substance: OCRELIZUMAB
     Indication: MULTIPLE SCLEROSIS
  2. OCREVUS [Suspect]
     Active Substance: OCRELIZUMAB
     Indication: PRIMARY PROGRESSIVE MULTIPLE SCLEROSIS
     Dosage: 300 MG ON DAY 1 AND 15 THEN 600 MG EVERY 6 MONTHS.?DATE OF TREATMENT 03/OCT/2017,03/OCT/2018,19/APR/
     Route: 042
     Dates: start: 20170919, end: 201910

REACTIONS (7)
  - Sepsis [Not Recovered/Not Resolved]
  - Hypertension [Unknown]
  - Swelling [Recovered/Resolved]
  - Alopecia [Not Recovered/Not Resolved]
  - Skin exfoliation [Recovered/Resolved]
  - Skin discolouration [Recovered/Resolved]
  - Cellulitis [Not Recovered/Not Resolved]

NARRATIVE: CASE EVENT DATE: 20190419
